FAERS Safety Report 7807952-8 (Version None)
Quarter: 2011Q4

REPORT INFORMATION
  Report Type: 
  Country: None (occurrence: None)
  Receive Date: 20111011
  Receipt Date: 20111011
  Transmission Date: 20120403
  Serious: Yes (Other)
  Sender: FDA-Public Use
  Company Number: None

PATIENT
  Age: 70 Year
  Sex: Female
  Weight: 74.842 kg

DRUGS (1)
  1. XELODA [Suspect]
     Indication: PANCREATIC CARCINOMA
     Dosage: 1500 MG
     Route: 048
     Dates: start: 20110919, end: 20110922

REACTIONS (7)
  - MUSCULAR WEAKNESS [None]
  - ABDOMINAL PAIN [None]
  - FATIGUE [None]
  - PARAESTHESIA [None]
  - ASTHENIA [None]
  - OROPHARYNGEAL DISCOMFORT [None]
  - DECREASED APPETITE [None]
